FAERS Safety Report 8987402 (Version 1)
Quarter: 2012Q4

REPORT INFORMATION
  Report Type: Report from Study
  Country: US (occurrence: US)
  Receive Date: 20121226
  Receipt Date: 20121226
  Transmission Date: 20130627
  Serious: Yes (Hospitalization)
  Sender: FDA-Public Use
  Company Number: US-ROCHE-1171254

PATIENT
  Sex: Male

DRUGS (2)
  1. CAPECITABINE [Suspect]
     Indication: NEOPLASM MALIGNANT
     Route: 065
  2. TAXOTERE [Concomitant]
     Route: 065

REACTIONS (6)
  - Pyrexia [Unknown]
  - Dysphagia [Unknown]
  - White blood cell count decreased [Unknown]
  - Pruritus [Unknown]
  - Mass [Unknown]
  - Palmar-plantar erythrodysaesthesia syndrome [Unknown]
